FAERS Safety Report 6265163-4 (Version None)
Quarter: 2009Q3

REPORT INFORMATION
  Report Type: 
  Country: None (occurrence: None)
  Receive Date: 20090713
  Receipt Date: 20090702
  Transmission Date: 20100115
  Serious: Yes (Other)
  Sender: FDA-Public Use
  Company Number: PHHY2009JP15168

PATIENT
  Sex: Male

DRUGS (23)
  1. ZOMETA [Suspect]
     Indication: METASTASES TO BONE
     Dosage: 4 MG
     Route: 042
     Dates: start: 20080123, end: 20080123
  2. ZOMETA [Suspect]
     Dosage: 4 MG
     Route: 042
     Dates: start: 20080220, end: 20080220
  3. ZOMETA [Suspect]
     Dosage: 4 MG
     Route: 042
     Dates: start: 20080317, end: 20080317
  4. ZOMETA [Suspect]
     Dosage: 4 MG
     Route: 042
     Dates: start: 20080517, end: 20080517
  5. ZOMETA [Suspect]
     Dosage: 4 MG
     Route: 042
     Dates: start: 20080614, end: 20080614
  6. ZOMETA [Suspect]
     Dosage: 4 MG
     Route: 042
     Dates: start: 20080702, end: 20080702
  7. ZOMETA [Suspect]
     Dosage: 4 MG
     Route: 042
     Dates: start: 20080730, end: 20080730
  8. ZOMETA [Suspect]
     Dosage: 4 MG
     Route: 042
     Dates: start: 20080827, end: 20080827
  9. ZOMETA [Suspect]
     Dosage: 4 MG
     Route: 042
     Dates: start: 20080924, end: 20080924
  10. ZOMETA [Suspect]
     Dosage: 4 MG
     Route: 042
     Dates: start: 20081022, end: 20081022
  11. ZOMETA [Suspect]
     Dosage: 4 MG
     Route: 042
     Dates: start: 20081126, end: 20081126
  12. ZOMETA [Suspect]
     Dosage: 4 MG
     Route: 042
     Dates: start: 20081227, end: 20081227
  13. ZOMETA [Suspect]
     Dosage: 4 MG
     Route: 042
     Dates: start: 20090128, end: 20090128
  14. DOCETAXEL [Concomitant]
     Route: 042
  15. GEMZAR [Concomitant]
     Indication: LUNG ADENOCARCINOMA
     Dosage: 1200 MG, UNK
     Route: 042
     Dates: start: 20080616
  16. OXYCONTIN [Concomitant]
     Route: 048
  17. FLOMOX [Concomitant]
     Route: 048
  18. GASTER [Concomitant]
     Indication: GASTRITIS
     Dosage: 40 MG, UNK
     Route: 048
     Dates: start: 20070808
  19. LOXONIN [Concomitant]
     Indication: PAIN
     Dosage: 180 MG, UNK
     Dates: start: 20070808
  20. MAGNESIUM OXIDE [Concomitant]
     Indication: CONSTIPATION
     Dosage: 1 G, UNK
     Route: 048
     Dates: start: 20081022
  21. NAVELBINE [Concomitant]
     Indication: LUNG ADENOCARCINOMA
     Dosage: 30 MG, UNK
     Route: 041
     Dates: start: 20080604, end: 20080702
  22. PRIDOL [Concomitant]
     Indication: LUNG ADENOCARCINOMA
     Dosage: 40 MG, UNK
     Route: 041
     Dates: start: 20080604, end: 20080702
  23. NEUTROGIN [Concomitant]
     Indication: NEUTROPENIA
     Dosage: 1000 UG, UNK
     Route: 058
     Dates: start: 20080625

REACTIONS (5)
  - BONE DISORDER [None]
  - ORAL INFECTION [None]
  - OSTEONECROSIS [None]
  - SWELLING [None]
  - TOOTHACHE [None]
